FAERS Safety Report 10691844 (Version 2)
Quarter: 2015Q1

REPORT INFORMATION
  Report Type: Spontaneous
  Country: US (occurrence: US)
  Receive Date: 20150105
  Receipt Date: 20150105
  Transmission Date: 20150720
  Serious: No
  Sender: FDA-Public Use
  Company Number: US-GLAXOSMITHKLINE-A1058508A

PATIENT

DRUGS (8)
  1. LOVAZA [Suspect]
     Active Substance: OMEGA-3-ACID ETHYL ESTERS
     Indication: BLOOD TRIGLYCERIDES INCREASED
     Dosage: 1 GRAM CAPSULE
     Route: 048
     Dates: start: 200604, end: 20140126
  2. AVAPRO [Concomitant]
     Active Substance: IRBESARTAN
  3. TRILIPIX [Concomitant]
     Active Substance: FENOFIBRIC ACID
  4. PLAVIX [Concomitant]
     Active Substance: CLOPIDOGREL BISULFATE
  5. SYNTHROID [Concomitant]
     Active Substance: LEVOTHYROXINE SODIUM
  6. INSULIN [Concomitant]
     Active Substance: INSULIN NOS
  7. BONIVA [Concomitant]
     Active Substance: IBANDRONATE SODIUM
  8. NORVASC [Concomitant]
     Active Substance: AMLODIPINE BESYLATE

REACTIONS (3)
  - Nausea [Recovering/Resolving]
  - Retching [Recovering/Resolving]
  - Product quality issue [Unknown]

NARRATIVE: CASE EVENT DATE: 20140125
